FAERS Safety Report 5136963-9 (Version None)
Quarter: 2006Q4

REPORT INFORMATION
  Report Type: 
  Country: None (occurrence: None)
  Receive Date: 20061030
  Receipt Date: 20060928
  Transmission Date: 20070319
  Serious: Yes (Life-Threatening, Hospitalization)
  Sender: FDA-Public Use
  Company Number: JP-SP-2006-02556

PATIENT
  Age: 78 Year
  Sex: Male

DRUGS (5)
  1. IMMUCYST [Suspect]
     Indication: BLADDER CANCER RECURRENT
     Route: 043
     Dates: start: 20060516, end: 20060919
  2. ATORVASTATIN CALCIUM [Concomitant]
     Dates: start: 20060131
  3. IBUDILAST [Concomitant]
     Route: 048
     Dates: start: 20060131
  4. CANDESARTAN CILEXETIL [Concomitant]
     Route: 048
  5. ASPIRIN [Concomitant]
     Route: 048

REACTIONS (6)
  - DISSEMINATED TUBERCULOSIS [None]
  - HEPATIC FUNCTION ABNORMAL [None]
  - HYPERSENSITIVITY [None]
  - PYREXIA [None]
  - RENAL IMPAIRMENT [None]
  - TUBERCULOSIS LIVER [None]
